FAERS Safety Report 8130430-6 (Version None)
Quarter: 2012Q1

REPORT INFORMATION
  Report Type: 
  Country: None (occurrence: None)
  Receive Date: 20120210
  Receipt Date: 20120207
  Transmission Date: 20120608
  Serious: Yes (Other)
  Sender: FDA-Public Use
  Company Number: US-AMGEN-USASP2011010889

PATIENT
  Age: 46 Year
  Sex: Female
  Weight: 106 kg

DRUGS (5)
  1. MUCINEX [Concomitant]
     Dosage: UNK UNK, PRN
  2. PRENATAL VITAMINS                  /01549301/ [Concomitant]
     Dosage: UNK
  3. RENATA [Concomitant]
     Dosage: UNK UNK, QD
     Route: 048
     Dates: start: 20110223
  4. NASONEX [Concomitant]
     Dosage: UNK UNK, QD
     Route: 045
     Dates: start: 20110321
  5. ENBREL [Suspect]
     Indication: ANKYLOSING SPONDYLITIS
     Dosage: 50 MG, QWK
     Route: 058
     Dates: start: 20040601, end: 20110223

REACTIONS (4)
  - HYPERSENSITIVITY [None]
  - GESTATIONAL DIABETES [None]
  - PREMATURE RUPTURE OF MEMBRANES [None]
  - COUGH [None]
